FAERS Safety Report 9404461 (Version 2)
Quarter: 2013Q3

REPORT INFORMATION
  Report Type: Spontaneous
  Country: US (occurrence: US)
  Receive Date: 20130717
  Receipt Date: 20130722
  Transmission Date: 20140515
  Serious: No
  Sender: FDA-Public Use
  Company Number: US-PFIZER INC-2013204857

PATIENT
  Age: 67 Year
  Sex: Female
  Weight: 136 kg

DRUGS (7)
  1. PREMARIN [Suspect]
     Indication: HYSTERECTOMY
     Dosage: 0.3 MG, 1X/DAY
     Route: 048
     Dates: start: 1998, end: 201307
  2. ATENOLOL [Concomitant]
     Dosage: 50 MG, 1X/DAY
  3. LEVOXYL [Concomitant]
     Dosage: 175 UG, 1X/DAY
  4. DILTIAZEM [Concomitant]
     Indication: PALPITATIONS
     Dosage: 120 MG, 2X/DAY
  5. DIOVAN HCT [Concomitant]
     Dosage: VALSARTAN (150 MG)/HYDROCHLOROTHIAZIDE (12.5 MG) DAILY
  6. POTASSIUM [Concomitant]
     Dosage: UNK
  7. VITAMIN D [Concomitant]
     Dosage: UNK

REACTIONS (4)
  - Urticaria [Recovered/Resolved]
  - Sleep disorder [Unknown]
  - Abdominal discomfort [Unknown]
  - Abdominal pain upper [Unknown]
